FAERS Safety Report 10674041 (Version 1)
Quarter: 2014Q4

REPORT INFORMATION
  Report Type: Spontaneous
  Country: TR (occurrence: TR)
  Receive Date: 20141224
  Receipt Date: 20141224
  Transmission Date: 20150529
  Serious: Yes (Death, Other)
  Sender: FDA-Public Use
  Company Number: PHHY2014TR164696

PATIENT
  Age: 53 Year
  Sex: Male

DRUGS (3)
  1. OCTREOTIDE [Suspect]
     Active Substance: OCTREOTIDE
     Indication: HEPATOCELLULAR CARCINOMA
     Dosage: 100 UG, TID
     Route: 058
  2. TAMOXIFEN [Suspect]
     Active Substance: TAMOXIFEN
     Indication: HEPATOCELLULAR CARCINOMA
     Dosage: 10 MG, BID
     Route: 065
  3. OCTREOTIDE, LONG ACTING [Suspect]
     Active Substance: OCTREOTIDE ACETATE
     Indication: HEPATOCELLULAR CARCINOMA
     Dosage: 30 MG, QMO
     Route: 030

REACTIONS (7)
  - Metastases to central nervous system [Unknown]
  - Vomiting [Recovered/Resolved]
  - Second primary malignancy [Unknown]
  - Nausea [Recovered/Resolved]
  - Death [Fatal]
  - Lung neoplasm malignant [Unknown]
  - Squamous cell carcinoma [Unknown]
